FAERS Safety Report 5207558-3 (Version None)
Quarter: 2006Q4

REPORT INFORMATION
  Report Type: 
  Country: None (occurrence: None)
  Receive Date: 20061030
  Receipt Date: 20060728
  Transmission Date: 20070319
  Serious: No
  Sender: FDA-Public Use
  Company Number: 255632

PATIENT
  Age: 70 Year
  Sex: Male
  Weight: 134.7 kg

DRUGS (4)
  1. LEVEMIR [Suspect]
     Indication: INSULIN-REQUIRING TYPE II DIABETES MELLITUS
     Dosage: 100 IU,QD, SUBCUTANEOUS; 160 IU, QD, SUBCUTANEOUS
     Route: 058
     Dates: start: 20060701, end: 20060728
  2. LEVEMIR [Suspect]
     Indication: INSULIN-REQUIRING TYPE II DIABETES MELLITUS
     Dosage: 100 IU,QD, SUBCUTANEOUS; 160 IU, QD, SUBCUTANEOUS
     Route: 058
     Dates: start: 20060728
  3. METFORMIN HCL [Concomitant]
  4. GLIMERID (GLIMEPIRIDE) [Concomitant]

REACTIONS (1)
  - BLOOD GLUCOSE INCREASED [None]
